FAERS Safety Report 19565192 (Version 8)
Quarter: 2021Q4

REPORT INFORMATION
  Report Type: Report from Study
  Country: CN (occurrence: CN)
  Receive Date: 20210714
  Receipt Date: 20211031
  Transmission Date: 20220303
  Serious: Yes (Life-Threatening, Hospitalization)
  Sender: FDA-Public Use
  Company Number: NVSC2021CN154066

PATIENT
  Age: 72 Year
  Sex: Male
  Weight: 61 kg

DRUGS (20)
  1. CAPMATINIB [Suspect]
     Active Substance: CAPMATINIB
     Indication: Non-small cell lung cancer
     Dosage: 400 MG, BID
     Route: 048
     Dates: start: 20210613, end: 20210708
  2. NADROPARIN CALCIUM [Concomitant]
     Active Substance: NADROPARIN CALCIUM
     Indication: Prophylaxis
     Dosage: UNK
     Route: 065
     Dates: start: 20210708, end: 20210708
  3. HEPARIN CALCIUM [Concomitant]
     Active Substance: HEPARIN CALCIUM
     Indication: Prophylaxis
     Dosage: UNK
     Route: 065
     Dates: start: 20210710, end: 20210710
  4. DIPHENHYDRAMINE HYDROCHLORIDE [Concomitant]
     Active Substance: DIPHENHYDRAMINE HYDROCHLORIDE
     Indication: Allergy prophylaxis
     Dosage: UNK
     Route: 065
     Dates: start: 20210708, end: 20210713
  5. FUROSEMIDE [Concomitant]
     Active Substance: FUROSEMIDE
     Indication: Urinary retention
     Dosage: UNK
     Route: 065
     Dates: start: 20210709, end: 20210714
  6. ACETYLCYSTEINE [Concomitant]
     Active Substance: ACETYLCYSTEINE
     Indication: Productive cough
     Dosage: UNK
     Route: 065
     Dates: start: 20210710, end: 20210721
  7. PULMICORT TURBUHALER [Concomitant]
     Active Substance: BUDESONIDE
     Indication: Productive cough
     Dosage: UNK
     Route: 065
     Dates: start: 20210710, end: 20210720
  8. CEFOXITIN SODIUM [Concomitant]
     Active Substance: CEFOXITIN SODIUM
     Indication: Pneumonitis
     Dosage: UNK
     Route: 065
     Dates: start: 20210709, end: 20210710
  9. CHLORAL HYDRATE [Concomitant]
     Active Substance: CHLORAL HYDRATE
     Indication: Constipation
     Dosage: UNK
     Route: 065
     Dates: start: 20210711, end: 20210711
  10. PIPERACILLIN AND TAZOBACTAM [Concomitant]
     Active Substance: PIPERACILLIN SODIUM\TAZOBACTAM SODIUM
     Indication: Pneumonitis
     Dosage: UNK
     Route: 065
     Dates: start: 20210710, end: 20210721
  11. METHYLPREDNISOLONE SODIUM SUCCINATE [Concomitant]
     Active Substance: METHYLPREDNISOLONE SODIUM SUCCINATE
     Indication: Pyrexia
     Dosage: UNK
     Route: 065
     Dates: start: 20210709, end: 20210709
  12. INSULIN NOS [Concomitant]
     Active Substance: INSULIN NOS
     Indication: Electrolyte imbalance
     Dosage: UNK
     Route: 065
     Dates: start: 20210708, end: 20210712
  13. POTASSIUM CHLORIDE [Concomitant]
     Active Substance: POTASSIUM CHLORIDE
     Indication: Electrolyte imbalance
     Dosage: UNK
     Route: 065
     Dates: start: 20210708, end: 20210721
  14. COMPOUND AMINOPHENAZONE AND BARBITAL [Concomitant]
     Indication: Pyrexia
     Dosage: UNK
     Route: 065
     Dates: start: 20210709, end: 20210709
  15. TORSEMIDE [Concomitant]
     Active Substance: TORSEMIDE
     Indication: Urinary retention
     Dosage: UNK
     Route: 065
     Dates: start: 20210715, end: 20210720
  16. PANTOPRAZOLE SODIUM [Concomitant]
     Active Substance: PANTOPRAZOLE SODIUM
     Indication: Prophylaxis
     Dosage: UNK
     Route: 065
     Dates: start: 20210708, end: 20210710
  17. ZINC CHLORIDE [Concomitant]
     Active Substance: ZINC CHLORIDE
     Indication: Prophylaxis
     Dosage: UNK
     Route: 065
     Dates: start: 20210709, end: 20210709
  18. ZINC CHLORIDE [Concomitant]
     Active Substance: ZINC CHLORIDE
     Dosage: UNK
     Route: 065
     Dates: start: 20210715, end: 20210715
  19. OMEPRAZOLE SODIUM [Concomitant]
     Active Substance: OMEPRAZOLE SODIUM
     Indication: Prophylaxis
     Dosage: UNK
     Route: 065
     Dates: start: 20210710, end: 20210719
  20. DEXAMETHASONE SODIUM PHOSPHATE [Concomitant]
     Active Substance: DEXAMETHASONE SODIUM PHOSPHATE
     Indication: Pyrexia
     Dosage: UNK
     Route: 065
     Dates: start: 20210710, end: 20210710

REACTIONS (1)
  - Platelet count decreased [Recovered/Resolved]

NARRATIVE: CASE EVENT DATE: 20210708
